FAERS Safety Report 5400069-1 (Version None)
Quarter: 2007Q3

REPORT INFORMATION
  Report Type: 
  Country: None (occurrence: None)
  Receive Date: 20070726
  Receipt Date: 20070726
  Transmission Date: 20080115
  Serious: Yes (Other)
  Sender: FDA-Public Use
  Company Number: None

PATIENT
  Age: 57 Year
  Sex: Female
  Weight: 54.4316 kg

DRUGS (1)
  1. BONIVA [Suspect]
     Indication: OSTEOPOROSIS
     Dates: start: 20070513, end: 20070513

REACTIONS (12)
  - ARTHRALGIA [None]
  - CONDITION AGGRAVATED [None]
  - DIZZINESS [None]
  - FEELING ABNORMAL [None]
  - MENTAL IMPAIRMENT [None]
  - MIGRAINE [None]
  - MUSCLE SPASMS [None]
  - MYALGIA [None]
  - PAIN [None]
  - PAIN IN EXTREMITY [None]
  - SCLERODERMA [None]
  - VISUAL DISTURBANCE [None]
